FAERS Safety Report 8814799 (Version 4)
Quarter: 2012Q4

REPORT INFORMATION
  Report Type: 
  Country: US (occurrence: US)
  Receive Date: 20120928
  Receipt Date: 20121123
  Transmission Date: 20130627
  Serious: No
  Sender: FDA-Public Use
  Company Number: US-009507513-1209USA006124

PATIENT
  Age: 34 None
  Sex: Female

DRUGS (1)
  1. IMPLANON [Suspect]
     Indication: CONTRACEPTION
     Dosage: UNK
     Route: 059
     Dates: start: 20090909, end: 20121011

REACTIONS (6)
  - Hypotonia [Unknown]
  - Device difficult to use [Unknown]
  - Device dislocation [Unknown]
  - Incorrect drug administration duration [Unknown]
  - Medical device complication [Unknown]
  - Medical device complication [Unknown]
